FAERS Safety Report 8581993-8 (Version None)
Quarter: 2012Q3

REPORT INFORMATION
  Report Type: 
  Country: None (occurrence: None)
  Receive Date: 20120809
  Receipt Date: 20120806
  Transmission Date: 20120928
  Serious: Yes (Other)
  Sender: FDA-Public Use
  Company Number: US-ASTRAZENECA-2011SE39017

PATIENT
  Age: 78 Year
  Sex: Female
  Weight: 77.6 kg

DRUGS (7)
  1. ASPIRIN [Suspect]
     Route: 048
  2. LEVOTHYROXINE SODIUM [Suspect]
  3. PRILOSEC [Suspect]
     Route: 048
  4. CRESTOR [Suspect]
     Route: 048
  5. LEVOTHROID [Suspect]
  6. CRESTOR [Suspect]
     Route: 048
  7. CARDIZEM CD [Suspect]

REACTIONS (12)
  - CATARACT CORTICAL [None]
  - OSTEOARTHRITIS [None]
  - PAIN IN EXTREMITY [None]
  - HYPOTHYROIDISM [None]
  - BREAST DISORDER [None]
  - BREAST MASS [None]
  - THYROID DISORDER [None]
  - HYPERTENSION [None]
  - HYPERLIPIDAEMIA [None]
  - ESSENTIAL HYPERTENSION [None]
  - OSTEOPENIA [None]
  - BASEDOW'S DISEASE [None]
